FAERS Safety Report 25852887 (Version 2)
Quarter: 2025Q4

REPORT INFORMATION
  Report Type: Spontaneous
  Country: PK (occurrence: PK)
  Receive Date: 20250926
  Receipt Date: 20251121
  Transmission Date: 20260118
  Serious: Yes (Other)
  Sender: PFIZER
  Company Number: PK-PFIZER INC-PV202400158950

PATIENT
  Age: 52 Year
  Sex: Male
  Weight: 53 kg

DRUGS (9)
  1. IXIFI [Suspect]
     Active Substance: INFLIXIMAB-QBTX
     Indication: Crohn^s disease
     Dosage: 300 MG, 5 MG/KG; EVERY 4 WEEKS
     Route: 042
     Dates: start: 202402
  2. IXIFI [Suspect]
     Active Substance: INFLIXIMAB-QBTX
     Dosage: 300 MG (5 MG/KG) THEN AFTER 6 WEEK THEN EVERY 8 WEEKS
     Route: 042
     Dates: start: 202402
  3. IXIFI [Suspect]
     Active Substance: INFLIXIMAB-QBTX
     Dosage: 600 MG (10 MG/KG), AT 0 WEEK (0, 2, AND 6WEEKS MAINTENANCE EVERY 8 WEEKS)
     Route: 042
     Dates: start: 202411
  4. IXIFI [Suspect]
     Active Substance: INFLIXIMAB-QBTX
     Dosage: 08 WEEKLY
  5. AMORIN [AZATHIOPRINE] [Concomitant]
     Dosage: 50 MG, 1X/DAY, (ONCE DAILY FOR 1 MONTH)
     Route: 048
  6. COLOFAC [MEBEVERINE HYDROCHLORIDE] [Concomitant]
     Dosage: 135 MG, 2X/DAY, FOR 15 DAY(S)
     Route: 048
  7. ENFLOR [Concomitant]
     Dosage: 250 MG, 2X/DAY, 1 SACHET FOR 5 DAY(S)
     Route: 048
  8. RIFAXA [Concomitant]
     Dosage: 550 MG, 3X/DAY, FOR 15 DAY(S)
     Route: 048
  9. RULING [OMEPRAZOLE] [Concomitant]
     Dosage: 20 MG, 2X/DAY, FOR 60 DAY (S)
     Route: 048

REACTIONS (9)
  - Substance-induced psychotic disorder [Unknown]
  - Condition aggravated [Unknown]
  - Sleep disorder [Unknown]
  - Pain [Unknown]
  - Muscle spasms [Unknown]
  - Mouth ulceration [Unknown]
  - Oral mucosal discolouration [Unknown]
  - Off label use [Unknown]
  - Off label use [Unknown]

NARRATIVE: CASE EVENT DATE: 20240201
